FAERS Safety Report 6935423-X (Version None)
Quarter: 2010Q3

REPORT INFORMATION
  Report Type: 
  Country: None (occurrence: None)
  Receive Date: 20100823
  Receipt Date: 20100813
  Transmission Date: 20110219
  Serious: Yes (Hospitalization)
  Sender: FDA-Public Use
  Company Number: US-BIOGENIDEC-2010BI002844

PATIENT
  Age: 27 Year
  Sex: Female

DRUGS (1)
  1. TYSABRI [Suspect]
     Indication: MULTIPLE SCLEROSIS
     Route: 042
     Dates: start: 20090630, end: 20090925

REACTIONS (4)
  - APHASIA [None]
  - BODY TEMPERATURE DECREASED [None]
  - FEELING COLD [None]
  - MULTIPLE SCLEROSIS RELAPSE [None]
